FAERS Safety Report 13581438 (Version 2)
Quarter: 2018Q4

REPORT INFORMATION
  Report Type: Report from Study
  Country: CA (occurrence: CA)
  Receive Date: 20170525
  Receipt Date: 20181116
  Transmission Date: 20190204
  Serious: Yes (Other)
  Sender: FDA-Public Use
  Company Number: CA-GLAXOSMITHKLINE-CA2017GSK074337

PATIENT
  Sex: Female

DRUGS (2)
  1. SALBUTAMOL SULPHATE [Suspect]
     Active Substance: ALBUTEROL SULFATE
     Indication: PRODUCT USED FOR UNKNOWN INDICATION
     Dosage: UNK
  2. NUCALA [Suspect]
     Active Substance: MEPOLIZUMAB
     Indication: ASTHMA
     Dosage: 100 MG, Z
     Route: 042

REACTIONS (8)
  - Wheezing [Recovered/Resolved]
  - Bronchitis [Unknown]
  - Asthma [Recovering/Resolving]
  - Lung infection [Unknown]
  - Dyspnoea [Recovering/Resolving]
  - Sleep disorder [Recovered/Resolved]
  - Loss of personal independence in daily activities [Recovering/Resolving]
  - Lower respiratory tract infection [Unknown]
